FAERS Safety Report 6992002-6 (Version None)
Quarter: 2010Q3

REPORT INFORMATION
  Report Type: 
  Country: None (occurrence: None)
  Receive Date: 20100917
  Receipt Date: 20100909
  Transmission Date: 20110219
  Serious: Yes (Other)
  Sender: FDA-Public Use
  Company Number: US-PFIZER INC-2010114934

PATIENT
  Sex: Female
  Weight: 81.633 kg

DRUGS (5)
  1. AROMASIN [Suspect]
     Indication: BREAST CANCER
     Dosage: 25 MG, 1X/DAY
     Route: 048
     Dates: start: 20030101
  2. DEPO-PROVERA [Suspect]
     Dosage: UNK
  3. SIMVASTATIN [Suspect]
     Indication: BLOOD CHOLESTEROL INCREASED
     Dosage: 40 MG, UNK
     Dates: end: 20100101
  4. LISINOPRIL [Concomitant]
     Dosage: UNK
  5. NEXIUM [Concomitant]
     Dosage: UNK

REACTIONS (7)
  - ANAL POLYP [None]
  - CONTUSION [None]
  - DRUG HYPERSENSITIVITY [None]
  - INTESTINAL POLYP [None]
  - PRECANCEROUS CELLS PRESENT [None]
  - RADIATION SKIN INJURY [None]
  - RECTAL POLYP [None]
